FAERS Safety Report 7285532-3 (Version None)
Quarter: 2011Q1

REPORT INFORMATION
  Report Type: 
  Country: None (occurrence: None)
  Receive Date: 20110121
  Receipt Date: 20071120
  Transmission Date: 20110831
  Serious: No
  Sender: FDA-Public Use
  Company Number: 162

PATIENT
  Sex: Male

DRUGS (2)
  1. FAZACLO ODT [Suspect]
     Indication: SCHIZOPHRENIA
     Dosage: 150 MG DAILY
     Dates: start: 20070315, end: 20071121
  2. INSULIN [Concomitant]

REACTIONS (1)
  - MUSCULAR WEAKNESS [None]
